FAERS Safety Report 5729907-X (Version None)
Quarter: 2008Q2

REPORT INFORMATION
  Report Type: 
  Country: None (occurrence: None)
  Receive Date: 20080502
  Receipt Date: 20080422
  Transmission Date: 20081010
  Serious: Yes (Life-Threatening, Hospitalization)
  Sender: FDA-Public Use
  Company Number: 232776J08USA

PATIENT
  Age: 58 Year
  Sex: Female
  Weight: 93.8946 kg

DRUGS (1)
  1. REBIF [Suspect]
     Indication: RELAPSING-REMITTING MULTIPLE SCLEROSIS
     Dosage: 22 MCG, 3 IN 1 WEEKS, SUBCUTANEOUS
     Route: 058
     Dates: start: 20021002, end: 20080212

REACTIONS (10)
  - ASTHENIA [None]
  - DEPRESSION [None]
  - DUODENAL ULCER [None]
  - DYSPEPSIA [None]
  - GASTROINTESTINAL HAEMORRHAGE [None]
  - HYPERTENSION [None]
  - MYOCARDIAL INFARCTION [None]
  - NAUSEA [None]
  - THROMBOCYTOPENIA [None]
  - ULCER [None]
